FAERS Safety Report 20514488 (Version 1)
Quarter: 2022Q1

REPORT INFORMATION
  Report Type: Report from Study
  Country: IN (occurrence: IN)
  Receive Date: 20220224
  Receipt Date: 20220224
  Transmission Date: 20220423
  Serious: Yes (Hospitalization)
  Sender: FDA-Public Use
  Company Number: IN-NOVARTISPH-NVSC2022IN039966

PATIENT
  Age: 62 Year
  Sex: Female

DRUGS (1)
  1. TASIGNA [Suspect]
     Active Substance: NILOTINIB
     Indication: Chronic myeloid leukaemia
     Dosage: 400 MG, BID
     Route: 065
     Dates: start: 20170415

REACTIONS (8)
  - Ovarian adenoma [Recovered/Resolved]
  - Cytogenetic analysis abnormal [Unknown]
  - Arthropathy [Not Recovered/Not Resolved]
  - Headache [Recovered/Resolved]
  - Dyspepsia [Recovered/Resolved]
  - Back pain [Not Recovered/Not Resolved]
  - Hypertension [Not Recovered/Not Resolved]
  - Anaemia [Not Recovered/Not Resolved]

NARRATIVE: CASE EVENT DATE: 20201201
